FAERS Safety Report 6633879-3 (Version None)
Quarter: 2010Q1

REPORT INFORMATION
  Report Type: 
  Country: None (occurrence: None)
  Receive Date: 20100315
  Receipt Date: 20100302
  Transmission Date: 20100710
  Serious: Yes (Hospitalization)
  Sender: FDA-Public Use
  Company Number: TH-JNJFOC-20100107400

PATIENT
  Sex: Male
  Weight: 42 kg

DRUGS (16)
  1. DORIPENEM [Suspect]
     Indication: URINARY TRACT INFECTION
     Route: 041
  2. DORIPENEM [Suspect]
     Route: 041
  3. TENOFOVIR [Concomitant]
     Route: 048
  4. LAMIVUDINE [Concomitant]
     Route: 048
  5. NEVIRAPINE [Concomitant]
     Route: 048
  6. MINIPRESS [Concomitant]
     Route: 048
  7. CLONAZEPAM [Concomitant]
     Route: 048
  8. DIAZEPAM [Concomitant]
     Route: 048
  9. AMITRIPTYLINE HCL [Concomitant]
     Route: 048
  10. DITROPAN [Concomitant]
     Route: 048
  11. PREDNISOLONE [Concomitant]
     Route: 048
  12. PREDNISOLONE 1% [Concomitant]
  13. ATROPINE [Concomitant]
  14. CLARITHROMYCIN [Concomitant]
     Indication: MYCOBACTERIUM AVIUM COMPLEX INFECTION
     Route: 048
  15. BROMHEXINE [Concomitant]
     Indication: COUGH
     Route: 048
  16. KCL ELIXIR [Concomitant]
     Indication: HYPOKALAEMIA
     Route: 048

REACTIONS (1)
  - ENTEROCOLITIS [None]
